FAERS Safety Report 13339893 (Version 1)
Quarter: 2017Q1

REPORT INFORMATION
  Report Type: Report from Study
  Country: US (occurrence: US)
  Receive Date: 20170315
  Receipt Date: 20170315
  Transmission Date: 20170428
  Serious: Yes (Hospitalization)
  Sender: FDA-Public Use
  Company Number: US-BIOGEN-2017BI00366555

PATIENT
  Sex: Female

DRUGS (1)
  1. TYSABRI [Suspect]
     Active Substance: NATALIZUMAB
     Indication: MULTIPLE SCLEROSIS
     Route: 042
     Dates: start: 20071016

REACTIONS (5)
  - Blood pressure increased [Unknown]
  - Asthenia [Unknown]
  - Influenza [Unknown]
  - Pneumonia [Unknown]
  - Abasia [Unknown]

NARRATIVE: CASE EVENT DATE: 2016
